FAERS Safety Report 8177922-1 (Version None)
Quarter: 2012Q1

REPORT INFORMATION
  Report Type: 
  Country: None (occurrence: None)
  Receive Date: 20120126
  Receipt Date: 20111026
  Transmission Date: 20120608
  Serious: No
  Sender: FDA-Public Use
  Company Number: PHEH2011US08109

PATIENT
  Age: 55 Year
  Sex: Female

DRUGS (2)
  1. AFINITOR [Suspect]
     Indication: PRIMITIVE NEUROECTODERMAL TUMOUR
     Dosage: ORAL
     Route: 048
     Dates: start: 20110401, end: 20110501
  2. SANDOSTATIN [Suspect]

REACTIONS (1)
  - RASH [None]
